FAERS Safety Report 7133451-5 (Version None)
Quarter: 2010Q4

REPORT INFORMATION
  Report Type: 
  Country: None (occurrence: None)
  Receive Date: 20101202
  Receipt Date: 20101122
  Transmission Date: 20110411
  Serious: Yes (Other)
  Sender: FDA-Public Use
  Company Number: US-MYLANLABS-2010S1019925

PATIENT
  Age: 20 Year
  Sex: Male
  Weight: 78.02 kg

DRUGS (9)
  1. AMNESTEEM [Suspect]
     Indication: ACNE CYSTIC
     Route: 048
     Dates: start: 20101012, end: 20101027
  2. AMNESTEEM [Suspect]
     Indication: SCAR
     Route: 048
     Dates: start: 20101012, end: 20101027
  3. RITALIN-SR [Concomitant]
     Dates: start: 20100701
  4. TENEX [Concomitant]
     Dates: start: 20100701
  5. AMLODIPINE [Concomitant]
     Dates: start: 20100701
  6. REMERON [Concomitant]
     Dates: start: 20100701
  7. TYLENOL-500 [Concomitant]
  8. IBUPROFEN [Concomitant]
  9. TUMS [Concomitant]

REACTIONS (2)
  - MOOD ALTERED [None]
  - SUICIDAL IDEATION [None]
